FAERS Safety Report 7118163-6 (Version None)
Quarter: 2010Q4

REPORT INFORMATION
  Report Type: 
  Country: None (occurrence: None)
  Receive Date: 20101123
  Receipt Date: 20101116
  Transmission Date: 20110411
  Serious: Yes (Death, Hospitalization)
  Sender: FDA-Public Use
  Company Number: BR-US-EMD SERONO, INC.-7009922

PATIENT
  Sex: Female

DRUGS (2)
  1. REBIF [Suspect]
     Indication: RELAPSING-REMITTING MULTIPLE SCLEROSIS
     Route: 058
     Dates: start: 20061201
  2. PARACETAMOL [Concomitant]

REACTIONS (5)
  - CARDIAC ARREST [None]
  - DECUBITUS ULCER [None]
  - MULTIPLE SCLEROSIS RELAPSE [None]
  - MUSCLE ATROPHY [None]
  - MUSCLE SPASMS [None]
